FAERS Safety Report 14713143 (Version 1)
Quarter: 2018Q2

REPORT INFORMATION
  Report Type: Spontaneous
  Country: US (occurrence: US)
  Receive Date: 20180404
  Receipt Date: 20180404
  Transmission Date: 20180711
  Serious: No
  Sender: FDA-Public Use
  Company Number: US-PFIZER INC-2018135793

PATIENT
  Age: 85 Year
  Sex: Female
  Weight: 48.8 kg

DRUGS (20)
  1. HYDROCORTISONE ACETATE. [Suspect]
     Active Substance: HYDROCORTISONE ACETATE
     Indication: PRURITUS
     Dosage: UNK
  2. GOLD BOND ORIGINAL STRENGTH POWDER [Suspect]
     Active Substance: MENTHOL\ZINC OXIDE
     Indication: PAIN
  3. ZEASORB AF [Suspect]
     Active Substance: MICONAZOLE NITRATE
     Indication: ERYTHEMA
  4. HYDROCORTISONE ACETATE. [Suspect]
     Active Substance: HYDROCORTISONE ACETATE
     Indication: ERYTHEMA
  5. GOLD BOND ORIGINAL STRENGTH POWDER [Suspect]
     Active Substance: MENTHOL\ZINC OXIDE
     Indication: ERYTHEMA
  6. CETAPHIL /02314901/ [Suspect]
     Active Substance: COSMETICS
     Indication: SWELLING
  7. HYDROCORTISONE ACETATE. [Suspect]
     Active Substance: HYDROCORTISONE ACETATE
     Indication: SWELLING
  8. NYSTATIN. [Suspect]
     Active Substance: NYSTATIN
     Indication: ERYTHEMA
  9. NYSTATIN. [Suspect]
     Active Substance: NYSTATIN
     Indication: PAIN
  10. ZEASORB AF [Suspect]
     Active Substance: MICONAZOLE NITRATE
     Indication: PRURITUS
     Dosage: UNK
  11. CETAPHIL /02314901/ [Suspect]
     Active Substance: COSMETICS
     Indication: PAIN
  12. NYSTATIN. [Suspect]
     Active Substance: NYSTATIN
     Indication: SWELLING
  13. CETAPHIL /02314901/ [Suspect]
     Active Substance: COSMETICS
     Indication: ERYTHEMA
  14. GOLD BOND ORIGINAL STRENGTH POWDER [Suspect]
     Active Substance: MENTHOL\ZINC OXIDE
     Indication: SWELLING
  15. ZEASORB AF [Suspect]
     Active Substance: MICONAZOLE NITRATE
     Indication: SWELLING
  16. GOLD BOND ORIGINAL STRENGTH POWDER [Suspect]
     Active Substance: MENTHOL\ZINC OXIDE
     Indication: PRURITUS
     Dosage: UNK
  17. CETAPHIL /02314901/ [Suspect]
     Active Substance: COSMETICS
     Indication: PRURITUS
     Dosage: UNK
  18. HYDROCORTISONE ACETATE. [Suspect]
     Active Substance: HYDROCORTISONE ACETATE
     Indication: PAIN
  19. NYSTATIN. [Suspect]
     Active Substance: NYSTATIN
     Indication: PRURITUS
     Dosage: UNK
  20. ZEASORB AF [Suspect]
     Active Substance: MICONAZOLE NITRATE
     Indication: PAIN

REACTIONS (1)
  - Drug ineffective [Unknown]
